FAERS Safety Report 9174682 (Version 1)
Quarter: 2013Q1

REPORT INFORMATION
  Report Type: Spontaneous
  Country: PL (occurrence: None)
  Receive Date: 20130318
  Receipt Date: 20130318
  Transmission Date: 20140127
  Serious: Yes (Life-Threatening)
  Sender: FDA-Public Use
  Company Number: 2013P1003219

PATIENT
  Age: 10 Year
  Sex: Female

DRUGS (1)
  1. ZINACEF [Suspect]
     Route: 042
     Dates: start: 20130301, end: 20130301

REACTIONS (4)
  - Loss of consciousness [None]
  - Tachypnoea [None]
  - Foaming at mouth [None]
  - Sensory disturbance [None]
